FAERS Safety Report 4482025-3 (Version None)
Quarter: 2004Q3

REPORT INFORMATION
  Report Type: 
  Country: None (occurrence: None)
  Receive Date: 20040921
  Receipt Date: 20030730
  Transmission Date: 20050211
  Serious: Yes (Other)
  Sender: FDA-Public Use
  Company Number: 163-20785-03070187

PATIENT
  Age: 90 Year
  Sex: Female

DRUGS (1)
  1. THALOMID [Suspect]
     Indication: MYELOFIBROSIS
     Dosage: 200 MG, DAILY, ORAL
     Route: 048
     Dates: start: 20030610, end: 20030614

REACTIONS (2)
  - HYPERSENSITIVITY [None]
  - SWELLING FACE [None]
